FAERS Safety Report 8981434 (Version 5)
Quarter: 2013Q1

REPORT INFORMATION
  Report Type: Spontaneous
  Country: US (occurrence: US)
  Receive Date: 20121221
  Receipt Date: 20130225
  Transmission Date: 20140127
  Serious: Yes (Other)
  Sender: FDA-Public Use
  Company Number: US-JNJFOC-20111201742

PATIENT
  Sex: Female

DRUGS (13)
  1. TOPAMAX [Suspect]
     Indication: TRIGEMINAL NEURALGIA
     Route: 048
     Dates: start: 2006, end: 200711
  2. ACETAMINOPHEN (+) CODEINE [Suspect]
     Indication: PAIN
     Route: 065
  3. DURAGESIC [Suspect]
     Indication: PRODUCT USED FOR UNKNOWN INDICATION
     Route: 062
  4. GABAPENTIN [Suspect]
     Indication: TRIGEMINAL NEURALGIA
     Route: 065
  5. LAMICTAL [Suspect]
     Indication: TRIGEMINAL NEURALGIA
     Route: 065
  6. CARBATROL [Suspect]
     Indication: TRIGEMINAL NEURALGIA
     Route: 065
  7. PERCOCET [Suspect]
     Indication: PRODUCT USED FOR UNKNOWN INDICATION
     Route: 065
  8. AMBIEN [Suspect]
     Indication: PRODUCT USED FOR UNKNOWN INDICATION
     Route: 065
  9. ZOFRAN [Suspect]
     Indication: PRODUCT USED FOR UNKNOWN INDICATION
     Route: 065
  10. PROCARDIA [Suspect]
     Indication: PRODUCT USED FOR UNKNOWN INDICATION
     Route: 065
  11. UNSPECIFIED NARCOTICS [Suspect]
     Indication: TRIGEMINAL NEURALGIA
     Route: 065
  12. FOLIC ACID [Concomitant]
     Indication: PREGNANCY
     Route: 065
  13. PRENATAL VITAMINS [Concomitant]
     Indication: PRODUCT USED FOR UNKNOWN INDICATION
     Route: 065

REACTIONS (3)
  - Premature delivery [Recovered/Resolved]
  - Exposure during pregnancy [Recovered/Resolved]
  - Emotional distress [Unknown]
